FAERS Safety Report 7355700 (Version 6)
Quarter: 2012Q4

REPORT INFORMATION
  Report Type: Report from Study
  Country: IT (occurrence: IT)
  Receive Date: 20100415
  Receipt Date: 20120907
  Transmission Date: 20130627
  Serious: Yes (Hospitalization, Other)
  Sender: FDA-Public Use
  Company Number: PHHO2010IT05335

PATIENT
  Age: 76 Year
  Sex: Male
  Weight: 80 kg

DRUGS (17)
  1. DIOVAN [Suspect]
     Indication: CARDIAC FAILURE CHRONIC
     Dosage: Level 1
     Route: 048
     Dates: start: 20100329, end: 20100406
  2. LCZ696 [Suspect]
     Indication: CARDIAC FAILURE CHRONIC
     Dosage: Level 1
     Route: 048
     Dates: start: 20100329, end: 20100406
  3. BLINDED NO TREATMENT RECEIVED [Suspect]
     Indication: CARDIAC FAILURE CHRONIC
     Dosage: Level 1
     Route: 048
     Dates: start: 20100329, end: 20100406
  4. POTASSIUM CHLORIDE [Suspect]
     Dosage: 600 mg, UNK
  5. PLACEBO [Suspect]
     Dosage: UNK
     Dates: start: 20100315
  6. COUMADIN [Concomitant]
  7. DIURETICS [Suspect]
  8. ANGIOTENSIN CONVERTING ENZYME BLOCKERS [Suspect]
  9. KANRENOL [Concomitant]
     Indication: CARDIAC FAILURE
     Dosage: UNK
     Dates: start: 201001, end: 20100406
  10. ZAROXOLYN [Concomitant]
     Indication: CARDIAC FAILURE
     Dosage: UNK
     Dates: start: 201001, end: 20100406
  11. LANOXIN [Concomitant]
     Indication: ATRIAL FLUTTER
     Dosage: UNK
     Dates: start: 20090921, end: 20100406
  12. WARFARIN [Concomitant]
  13. PROTON PUMP INHIBITORS [Concomitant]
  14. FUROSEMIDE [Concomitant]
  15. METOLAZONE [Concomitant]
  16. AMLODIPINE [Concomitant]
  17. BISOPROLOL [Concomitant]

REACTIONS (22)
  - Hypotension [Recovered/Resolved]
  - Hyperkalaemia [Unknown]
  - Gastritis [Recovered/Resolved]
  - Gastric haemorrhage [Recovered/Resolved]
  - Anaemia [Recovered/Resolved]
  - Asthenia [Recovered/Resolved]
  - Dyspnoea [Recovered/Resolved]
  - Melaena [Recovered/Resolved]
  - Enterococcal sepsis [Recovered/Resolved]
  - Hyperpyrexia [Unknown]
  - Bacterial infection [Unknown]
  - Gastritis erosive [Recovered/Resolved]
  - Erythema [Recovered/Resolved]
  - Flatulence [Recovered/Resolved]
  - Rectal haemorrhage [Recovered/Resolved]
  - Azotaemia [Recovered/Resolved]
  - Renal failure acute [Recovered/Resolved]
  - Breath odour [Recovered/Resolved]
  - International normalised ratio increased [Unknown]
  - Breath sounds abnormal [Recovered/Resolved]
  - Pruritus [Recovered/Resolved]
  - Cardiac murmur [Not Recovered/Not Resolved]
